FAERS Safety Report 8091555-7 (Version None)
Quarter: 2012Q1

REPORT INFORMATION
  Report Type: 
  Country: None (occurrence: None)
  Receive Date: 20120125
  Receipt Date: 20120110
  Transmission Date: 20120608
  Serious: Yes (Death)
  Sender: FDA-Public Use
  Company Number: 2011HGS-002957

PATIENT
  Age: 39 Year
  Sex: Female

DRUGS (4)
  1. BENLYSTA [Suspect]
     Indication: SYSTEMIC LUPUS ERYTHEMATOSUS
     Dosage: 10 MG, 1 IN 28 D, INTRAVENOUS DRIP
     Dates: start: 20110824
  2. NEURONTIN [Concomitant]
  3. PLAQUENIL (HYDROXYCHLOROQUINE SULFATE) (HYDROXYCHLOROQUINE SULFATE) [Concomitant]
  4. PREDNISONE [Concomitant]

REACTIONS (3)
  - HEADACHE [None]
  - DIARRHOEA [None]
  - FATIGUE [None]
